FAERS Safety Report 9875223 (Version 1)
Quarter: 2014Q1

REPORT INFORMATION
  Report Type: Spontaneous
  Country: TR (occurrence: TR)
  Receive Date: 20140206
  Receipt Date: 20140206
  Transmission Date: 20141002
  Serious: Yes (Other)
  Sender: FDA-Public Use
  Company Number: PHHY2014TR012672

PATIENT
  Age: 8 Year
  Sex: Female

DRUGS (1)
  1. METHYLPHENIDATE [Suspect]
     Indication: ATTENTION DEFICIT/HYPERACTIVITY DISORDER

REACTIONS (4)
  - Sudden hearing loss [Not Recovered/Not Resolved]
  - Balance disorder [Unknown]
  - Tinnitus [Unknown]
  - Ear discomfort [Unknown]
